FAERS Safety Report 21289467 (Version 1)
Quarter: 2022Q3

REPORT INFORMATION
  Report Type: Spontaneous
  Country: GR (occurrence: GR)
  Receive Date: 20220902
  Receipt Date: 20220902
  Transmission Date: 20221026
  Serious: Yes (Death, Other)
  Sender: FDA-Public Use
  Company Number: GR-CELLTRION HEALTHCARE HUNGARY KFT-2022GR012096

PATIENT
  Age: 62 Year
  Sex: Male

DRUGS (6)
  1. CYTARABINE [Suspect]
     Active Substance: CYTARABINE
     Indication: Bing-Neel syndrome
     Dosage: HIGH DOSE
     Route: 065
  2. METHOTREXATE [Suspect]
     Active Substance: METHOTREXATE
     Indication: Bing-Neel syndrome
     Dosage: HIGH DOSE
     Route: 065
  3. RITUXIMAB [Suspect]
     Active Substance: RITUXIMAB
     Indication: Bing-Neel syndrome
     Dosage: FOR BNS TREATMENT
     Route: 065
  4. RITUXIMAB [Suspect]
     Active Substance: RITUXIMAB
     Indication: Waldenstrom^s macroglobulinaemia
     Dosage: FOR BNS TREATMENT
     Route: 065
  5. RITUXIMAB [Suspect]
     Active Substance: RITUXIMAB
     Dosage: (PRIOR TO BNS)
     Route: 065
  6. CYCLOPHOSPHAMIDE\DOXORUBICIN\PREDNISONE\VINCRISTINE [Suspect]
     Active Substance: CYCLOPHOSPHAMIDE\DOXORUBICIN\PREDNISONE\VINCRISTINE
     Indication: Waldenstrom^s macroglobulinaemia
     Dosage: UNK
     Route: 065

REACTIONS (4)
  - Bing-Neel syndrome [Fatal]
  - Disease progression [Fatal]
  - Off label use [Unknown]
  - Therapy partial responder [Unknown]
